FAERS Safety Report 4973607-0 (Version None)
Quarter: 2006Q2

REPORT INFORMATION
  Report Type: 
  Country: None (occurrence: None)
  Receive Date: 20060413
  Receipt Date: 20060413
  Transmission Date: 20061013
  Serious: Yes (Life-Threatening)
  Sender: FDA-Public Use
  Company Number: None

PATIENT
  Age: 51 Year
  Sex: Female

DRUGS (1)
  1. CYCLOBENZAPRINE HCL [Suspect]
     Indication: MUSCLE SPASMS
     Dosage: ORAL;10.0 MILLIGRAM
     Route: 048
     Dates: start: 20060221, end: 20060221

REACTIONS (9)
  - ABASIA [None]
  - ASTHENIA [None]
  - DIZZINESS [None]
  - DYSPNOEA [None]
  - OEDEMA PERIPHERAL [None]
  - PRURITUS [None]
  - SWELLING FACE [None]
  - SYNCOPE [None]
  - VOMITING [None]
